FAERS Safety Report 25128552 (Version 1)
Quarter: 2025Q1

REPORT INFORMATION
  Report Type: Other
  Country: NP (occurrence: NP)
  Receive Date: 20250327
  Receipt Date: 20250327
  Transmission Date: 20250409
  Serious: Yes (Hospitalization, Other)
  Sender: ALVOGEN
  Company Number: NP-ALVOGEN-2025096518

PATIENT
  Age: 27 Year
  Sex: Male

DRUGS (5)
  1. PRIMAQUINE [Suspect]
     Active Substance: PRIMAQUINE
     Indication: Plasmodium vivax infection
  2. ACETAMINOPHEN [Concomitant]
     Active Substance: ACETAMINOPHEN
     Indication: Plasmodium vivax infection
     Route: 042
  3. PANTOPRAZOLE [Concomitant]
     Active Substance: PANTOPRAZOLE
     Indication: Plasmodium vivax infection
     Route: 042
  4. CHLOROQUINE [Concomitant]
     Active Substance: CHLOROQUINE
     Indication: Plasmodium vivax infection
  5. CHLOROQUINE [Concomitant]
     Active Substance: CHLOROQUINE
     Indication: Plasmodium vivax infection

REACTIONS (1)
  - Haemolytic anaemia [Recovering/Resolving]
